FAERS Safety Report 15793084 (Version 1)
Quarter: 2019Q1

REPORT INFORMATION
  Report Type: Spontaneous
  Country: ES (occurrence: ES)
  Receive Date: 20190107
  Receipt Date: 20190107
  Transmission Date: 20190417
  Serious: Yes (Other)
  Sender: FDA-Public Use
  Company Number: PHHY2018ES199656

PATIENT

DRUGS (1)
  1. METFORMIN [Suspect]
     Active Substance: METFORMIN HYDROCHLORIDE
     Indication: BLOOD GLUCOSE INCREASED
     Dosage: 850 MG, UNK
     Route: 048

REACTIONS (4)
  - Choking [Unknown]
  - Wrong technique in product usage process [Unknown]
  - Product use complaint [Unknown]
  - Retching [Unknown]
